FAERS Safety Report 5045815-4 (Version None)
Quarter: 2006Q2

REPORT INFORMATION
  Report Type: 
  Country: None (occurrence: None)
  Receive Date: 20060601
  Receipt Date: 20060309
  Transmission Date: 20061013
  Serious: No
  Sender: FDA-Public Use
  Company Number: 2005-BP-21723BP

PATIENT
  Sex: Female

DRUGS (1)
  1. SPIRIVA [Suspect]
     Indication: CHRONIC OBSTRUCTIVE PULMONARY DISEASE
     Dosage: SEE TEXT (18 MCG,Q 3-4 DAYS PRN), IH
     Route: 055
     Dates: start: 20050701

REACTIONS (4)
  - DRUG INEFFECTIVE [None]
  - PRODUCTIVE COUGH [None]
  - SENSORY LOSS [None]
  - WHEEZING [None]
